FAERS Safety Report 5804235-2 (Version None)
Quarter: 2008Q3

REPORT INFORMATION
  Report Type: 
  Country: None (occurrence: None)
  Receive Date: 20080707
  Receipt Date: 20080623
  Transmission Date: 20090109
  Serious: Yes (Hospitalization)
  Sender: FDA-Public Use
  Company Number: 2008AL007182

PATIENT
  Age: 77 Year
  Sex: Female

DRUGS (7)
  1. DILTIAZEM HCL [Suspect]
     Dosage: 90 MG; BID
  2. ATENOLOL [Concomitant]
  3. BEZAFIBRATE [Concomitant]
  4. RAMIPRIL [Concomitant]
  5. OMEPRZOLE [Concomitant]
  6. ASPIRIN [Concomitant]
  7. AMITRIPTYLINE HCL [Concomitant]

REACTIONS (4)
  - BRADYCARDIA [None]
  - FALL [None]
  - PALPITATIONS [None]
  - SINUS ARRHYTHMIA [None]
